FAERS Safety Report 9645533 (Version 3)
Quarter: 2014Q2

REPORT INFORMATION
  Report Type: Spontaneous
  Country: US (occurrence: US)
  Receive Date: 20131025
  Receipt Date: 20140425
  Transmission Date: 20141212
  Serious: Yes (Other)
  Sender: FDA-Public Use
  Company Number: US-PFIZER INC-2013303746

PATIENT
  Age: 42 Year
  Sex: Female

DRUGS (8)
  1. IBUPROFEN [Suspect]
     Indication: DYSMENORRHOEA
     Dosage: UNK
     Route: 065
  2. ZOLOFT [Suspect]
     Indication: BIPOLAR DISORDER
     Dosage: 100 MG, 2X/DAY
     Route: 065
     Dates: start: 20050125, end: 20050425
  3. ZOLOFT [Suspect]
     Dosage: 100 MG, 2X/DAY
     Dates: start: 20051203, end: 20051203
  4. TOPAMAX [Suspect]
     Indication: BIPOLAR DISORDER
     Dosage: 100 MG, UNK
     Route: 048
     Dates: start: 200511, end: 200601
  5. WELLBUTRIN [Suspect]
     Dosage: UNK
     Route: 065
  6. ESTROGEN [Suspect]
     Indication: VAGINAL HAEMORRHAGE
     Dosage: UNK
     Route: 065
  7. PROMETRIUM [Suspect]
     Indication: HORMONE REPLACEMENT THERAPY
     Dosage: 200 MG, 1X/DAY
     Route: 065
     Dates: start: 20060119, end: 20060219
  8. MULTIVITAMINS W/MINERALS [Concomitant]
     Dosage: 1 DF, UNK
     Route: 048

REACTIONS (2)
  - Premature delivery [Not Recovered/Not Resolved]
  - Emotional disorder [Unknown]
